FAERS Safety Report 7907984-5 (Version None)
Quarter: 2011Q4

REPORT INFORMATION
  Report Type: 
  Country: None (occurrence: None)
  Receive Date: 20111110
  Receipt Date: 20111101
  Transmission Date: 20120403
  Serious: Yes (Hospitalization)
  Sender: FDA-Public Use
  Company Number: US-ASTRAZENECA-2011SE66400

PATIENT
  Sex: Female

DRUGS (2)
  1. SEROQUEL [Suspect]
     Route: 048
  2. RISPERDAL [Concomitant]

REACTIONS (3)
  - DRUG DOSE OMISSION [None]
  - ADVERSE EVENT [None]
  - ANXIETY [None]
